APPROVED DRUG PRODUCT: DOXYCYCLINE
Active Ingredient: DOXYCYCLINE
Strength: EQ 25MG BASE/5ML
Dosage Form/Route: FOR SUSPENSION;ORAL
Application: A065454 | Product #001 | TE Code: AB
Applicant: CHARTWELL SCHEDULED LLC
Approved: Jul 16, 2008 | RLD: No | RS: No | Type: RX